FAERS Safety Report 12709195 (Version 1)
Quarter: 2016Q3

REPORT INFORMATION
  Report Type: Spontaneous
  Country: CN (occurrence: CN)
  Receive Date: 20160901
  Receipt Date: 20160901
  Transmission Date: 20161109
  Serious: Yes (Hospitalization)
  Sender: FDA-Public Use
  Company Number: CN-ABBVIE-16P-035-1715076-00

PATIENT
  Age: 61 Year
  Sex: Female

DRUGS (1)
  1. DEPAKINE CHRONO [Suspect]
     Active Substance: VALPROATE SODIUM
     Indication: POSTOPERATIVE CARE
     Route: 048
     Dates: start: 201607, end: 201608

REACTIONS (7)
  - Biliary tract disorder [Not Recovered/Not Resolved]
  - Jaundice [Not Recovered/Not Resolved]
  - Blood glucose increased [Unknown]
  - Hepatic failure [Not Recovered/Not Resolved]
  - Gallbladder non-functioning [Not Recovered/Not Resolved]
  - Pancreatic mass [Not Recovered/Not Resolved]
  - Pruritus [Unknown]

NARRATIVE: CASE EVENT DATE: 201607
